FAERS Safety Report 9325168 (Version 1)
Quarter: 2013Q2

REPORT INFORMATION
  Report Type: Report from Study
  Country: NL (occurrence: NL)
  Receive Date: 20130603
  Receipt Date: 20130603
  Transmission Date: 20140414
  Serious: Yes (Hospitalization)
  Sender: FDA-Public Use
  Company Number: NL-TEVA-408829ISR

PATIENT
  Age: 61 Year
  Sex: Female

DRUGS (8)
  1. PACLITAXEL [Suspect]
     Indication: BREAST CANCER METASTATIC
     Dosage: 150 MILLIGRAM DAILY;
     Route: 042
     Dates: start: 20110203, end: 20110803
  2. MYOCET [Suspect]
  3. BEVACIZUMAB [Suspect]
     Indication: BREAST CANCER METASTATIC
     Dosage: 620 MILLIGRAM DAILY;
     Route: 042
     Dates: start: 20110203, end: 20110803
  4. CALCICHEW [Concomitant]
  5. METOCLOPRAMIDE [Concomitant]
  6. PROMETHAZINE [Concomitant]
  7. CRESTOR [Concomitant]
  8. PARACETAMOL [Concomitant]

REACTIONS (4)
  - Hypertension [Unknown]
  - Headache [Unknown]
  - Dizziness [Unknown]
  - Muscle spasms [Unknown]
